FAERS Safety Report 8808472 (Version 1)
Quarter: 2012Q4

REPORT INFORMATION
  Report Type: Spontaneous
  Country: US (occurrence: None)
  Receive Date: 20120920
  Receipt Date: 20120920
  Transmission Date: 20130627
  Serious: Yes (Other)
  Sender: FDA-Public Use
  Company Number: None

PATIENT
  Age: 35 Year
  Sex: Female
  Weight: 79.38 kg

DRUGS (1)
  1. SUBOXONE FILM [Suspect]
     Indication: DRUG WITHDRAWAL SYNDROME
     Route: 048
     Dates: start: 20091001, end: 20120901

REACTIONS (6)
  - Product quality issue [None]
  - Pain [None]
  - Migraine [None]
  - Musculoskeletal stiffness [None]
  - Drug ineffective [None]
  - Product quality issue [None]
